FAERS Safety Report 8452660-6 (Version None)
Quarter: 2012Q2

REPORT INFORMATION
  Report Type: 
  Country: None (occurrence: None)
  Receive Date: 20120620
  Receipt Date: 20120518
  Transmission Date: 20120825
  Serious: No
  Sender: FDA-Public Use
  Company Number: US-VERTEX PHARMACEUTICALS INC.-AE-2012-005781

PATIENT
  Sex: Female
  Weight: 57.431 kg

DRUGS (6)
  1. INCIVEK [Suspect]
     Indication: HEPATITIS C
     Route: 048
     Dates: start: 20120331
  2. BENADRYL [Concomitant]
     Indication: ANTIALLERGIC THERAPY
  3. MAXALT [Concomitant]
     Indication: MIGRAINE
     Route: 048
  4. ESTROGEN REPLACEMENT [Concomitant]
     Indication: BLOOD OESTROGEN
     Route: 048
  5. PEGINTERFERON ALFA-2A [Concomitant]
     Indication: HEPATITIS C
     Route: 058
     Dates: start: 20120331
  6. RIBAVIRIN [Concomitant]
     Indication: HEPATITIS C
     Route: 048
     Dates: start: 20120331

REACTIONS (14)
  - PRURITUS GENERALISED [None]
  - HYPERCHLORHYDRIA [None]
  - BLOOD GLUCOSE INCREASED [None]
  - HEADACHE [None]
  - DEPRESSED MOOD [None]
  - MUSCLE TIGHTNESS [None]
  - TREMOR [None]
  - CHILLS [None]
  - VOMITING [None]
  - PLATELET COUNT DECREASED [None]
  - DYSPNOEA [None]
  - ABDOMINAL DISCOMFORT [None]
  - CONSTIPATION [None]
  - DIARRHOEA [None]
